FAERS Safety Report 6631091-5 (Version None)
Quarter: 2010Q1

REPORT INFORMATION
  Report Type: 
  Country: None (occurrence: None)
  Receive Date: 20100309
  Receipt Date: 20100226
  Transmission Date: 20100710
  Serious: Yes (Other)
  Sender: FDA-Public Use
  Company Number: MIN-00583

PATIENT
  Age: 30 Year
  Sex: Female

DRUGS (2)
  1. MINOCYCLINE HCL [Suspect]
     Indication: ACNE
  2. ORAL CONTRACEPTIVES [Concomitant]

REACTIONS (2)
  - POLYARTERITIS NODOSA [None]
  - SKIN DISORDER [None]
